FAERS Safety Report 19688858 (Version 2)
Quarter: 2021Q3

REPORT INFORMATION
  Report Type: Spontaneous
  Country: US (occurrence: US)
  Receive Date: 20210811
  Receipt Date: 20210813
  Transmission Date: 20211014
  Serious: No
  Sender: FDA-Public Use
  Company Number: US-SA-2021SA261234

PATIENT
  Age: 64 Year
  Sex: Female

DRUGS (1)
  1. ALLEGRA ALLERGY [Suspect]
     Active Substance: FEXOFENADINE HYDROCHLORIDE
     Indication: HYPERSENSITIVITY
     Dosage: 180 MG, BID? ( TAKE ONE EVERY OTHER DAY )
     Route: 065

REACTIONS (6)
  - Nervousness [Unknown]
  - Therapeutic response decreased [Unknown]
  - Oropharyngeal discomfort [Unknown]
  - Regurgitation [Unknown]
  - Drainage [Unknown]
  - Sneezing [Unknown]
